FAERS Safety Report 12588107 (Version 3)
Quarter: 2016Q4

REPORT INFORMATION
  Report Type: Report from Study
  Country: JP (occurrence: JP)
  Receive Date: 20160725
  Receipt Date: 20161107
  Transmission Date: 20170207
  Serious: Yes (Death, Other)
  Sender: FDA-Public Use
  Company Number: JP-GILEAD-2016-0213885

PATIENT
  Age: 72 Year
  Sex: Male
  Weight: 50 kg

DRUGS (64)
  1. LASIX [Suspect]
     Active Substance: FUROSEMIDE
     Indication: PULMONARY ARTERIAL HYPERTENSION
     Dosage: UNK
     Route: 048
     Dates: start: 20131011, end: 20151015
  2. LASIX [Suspect]
     Active Substance: FUROSEMIDE
     Dosage: UNK
     Route: 048
     Dates: start: 20131011, end: 20131015
  3. KARY UNI                           /00528801/ [Concomitant]
     Active Substance: PIRENOXINE
     Dosage: UNK
  4. NEXIUM [Concomitant]
     Active Substance: ESOMEPRAZOLE MAGNESIUM
     Indication: PROPHYLAXIS
     Dosage: UNK
     Dates: start: 20131202, end: 20151015
  5. SODIUM PICOSULFATE [Concomitant]
     Active Substance: SODIUM PICOSULFATE
     Dosage: UNK
     Dates: start: 20140929, end: 20140929
  6. GASCON [Concomitant]
     Active Substance: DIMETHICONE
     Dosage: UNK
     Dates: start: 20140930, end: 20140930
  7. KETOPROFEN. [Concomitant]
     Active Substance: KETOPROFEN
     Dosage: UNK
     Dates: start: 20151007, end: 20151015
  8. PYDOXAL [Concomitant]
     Active Substance: PYRIDOXAL
     Indication: PROPHYLAXIS
     Dosage: UNK
     Dates: end: 20131101
  9. NEOISCOTIN [Concomitant]
     Active Substance: METHANIAZIDE
     Indication: PROPHYLAXIS
     Dosage: UNK
     Dates: end: 20131101
  10. HUSCODE [Concomitant]
     Active Substance: CHLORPHENIRAMINE MALEAT\DIHYDROCODEINE PHOSPHATE\METHYLEPHEDRINE HYDROCHLORIDE, DL-
     Dosage: UNK
     Dates: end: 20131101
  11. URIEF [Concomitant]
     Active Substance: SILODOSIN
     Dosage: UNK
     Dates: start: 20130830, end: 20150415
  12. KARY UNI                           /00528801/ [Concomitant]
     Active Substance: PIRENOXINE
     Dosage: UNK
     Dates: start: 20131006, end: 20131213
  13. GLUCAGON G [Concomitant]
     Dosage: UNK
     Dates: start: 20140930, end: 20140930
  14. MOSAPRIDE CITRATE [Concomitant]
     Active Substance: MOSAPRIDE CITRATE
     Dosage: UNK
     Dates: start: 20140930, end: 20140930
  15. KARY UNI [Concomitant]
     Active Substance: PIRENOXINE
     Dosage: UNK
     Dates: start: 20140929
  16. KARY UNI [Concomitant]
     Active Substance: PIRENOXINE
     Dosage: UNK
     Dates: start: 20150527
  17. TRACLEER [Concomitant]
     Active Substance: BOSENTAN
     Indication: PULMONARY ARTERIAL HYPERTENSION
  18. FOSAMAC [Concomitant]
     Active Substance: ALENDRONATE SODIUM
     Dosage: UNK
     Dates: start: 20140609, end: 20150119
  19. GLUCAGON G [Concomitant]
     Indication: INVESTIGATION
     Dosage: UNK
     Dates: start: 20140813, end: 20140813
  20. DOMPERIDONE [Concomitant]
     Active Substance: DOMPERIDONE
     Dosage: UNK
     Dates: start: 20140930, end: 20140930
  21. ROCAIN                             /00083402/ [Concomitant]
     Indication: INVESTIGATION
     Dosage: UNK
     Dates: start: 20141122, end: 20141122
  22. PREDONINE [Concomitant]
     Active Substance: PREDNISOLONE\PREDNISOLONE ACETATE\PREDNISOLONE SODIUM SUCCINATE
     Dosage: UNK
     Dates: end: 20151015
  23. FLIVAS OD [Concomitant]
     Dosage: UNK
     Dates: start: 20150416, end: 20151014
  24. LIVOSTIN EYE DROPS [Concomitant]
     Dosage: UNK
     Dates: start: 20150527
  25. FLIVAS [Concomitant]
     Active Substance: NAFTOPIDIL
     Dosage: UNK
     Dates: end: 20130830
  26. GENINAX [Concomitant]
     Active Substance: GARENOXACIN MESYLATE
     Indication: PROPHYLAXIS
     Dosage: UNK
     Dates: start: 20130729, end: 20130913
  27. FOSAMAC [Concomitant]
     Active Substance: ALENDRONATE SODIUM
     Indication: PROPHYLAXIS
     Dosage: UNK
     Dates: start: 20130527, end: 20131026
  28. ENSURE [Concomitant]
     Active Substance: AMINO ACIDS\DEXTROSE\ELECTROLYTES NOS\SOYBEAN OIL\VITAMINS
     Dosage: UNK
     Dates: start: 20150728, end: 20151012
  29. HEPARIN SODIUM. [Concomitant]
     Active Substance: HEPARIN SODIUM
     Indication: PROPHYLAXIS
     Dosage: UNK
     Dates: start: 20151015, end: 20151015
  30. FLIVAS OD [Concomitant]
     Dosage: UNK
     Dates: end: 20130830
  31. PATANOL OPHTHALMIC SOLUTION [Concomitant]
     Dosage: UNK
     Dates: start: 20151008
  32. AMBRISENTAN [Suspect]
     Active Substance: AMBRISENTAN
     Indication: PULMONARY ARTERIAL HYPERTENSION
     Dosage: 5 MG, BID
     Route: 048
     Dates: start: 20130527, end: 20151015
  33. LIPITOR [Concomitant]
     Active Substance: ATORVASTATIN CALCIUM
     Dosage: UNK
     Dates: end: 20131101
  34. KARY UNI                           /00528801/ [Concomitant]
     Active Substance: PIRENOXINE
     Dosage: UNK
     Dates: start: 20140929
  35. CEFTAZIDIME. [Concomitant]
     Active Substance: CEFTAZIDIME
     Indication: PROPHYLAXIS
     Dosage: UNK
     Dates: start: 20150919, end: 20150925
  36. KARY UNI [Concomitant]
     Active Substance: PIRENOXINE
     Dosage: UNK
     Dates: start: 20131006, end: 20131213
  37. SODIUM PICOSULFATE HYDRATE [Concomitant]
     Dosage: UNK
     Dates: start: 20140929, end: 20140929
  38. LASIX [Suspect]
     Active Substance: FUROSEMIDE
     Indication: PULMONARY ARTERIAL HYPERTENSION
     Dosage: UNK
     Route: 048
     Dates: start: 20131011, end: 20151015
  39. KLARICID                           /00984601/ [Concomitant]
     Active Substance: CLARITHROMYCIN
     Dosage: UNK
     Dates: start: 20130927, end: 20151015
  40. LIVOSTIN [Concomitant]
     Active Substance: LEVOCABASTINE HYDROCHLORIDE
     Indication: CONJUNCTIVITIS ALLERGIC
     Dosage: UNK
     Dates: start: 20140929
  41. BIOFERMIN                          /07746301/ [Concomitant]
     Indication: PROPHYLAXIS
     Dosage: UNK
     Dates: start: 20150928, end: 20150928
  42. BIOFERMIN R [Concomitant]
     Active Substance: BACILLUS SUBTILIS\LACTOBACILLUS ACIDOPHILUS\STREPTOCOCCUS FAECAIS
     Indication: PROPHYLAXIS
     Dosage: UNK
     Dates: start: 20150929, end: 20151015
  43. KARY UNI [Concomitant]
     Active Substance: PIRENOXINE
     Dosage: UNK
     Dates: start: 20151008
  44. NEXIUM [Concomitant]
     Active Substance: ESOMEPRAZOLE MAGNESIUM
     Indication: PROPHYLAXIS
     Dosage: UNK
     Dates: start: 20131202, end: 20151015
  45. KLARICID [Concomitant]
     Active Substance: CLARITHROMYCIN
     Indication: PROPHYLAXIS
     Dosage: UNK
     Dates: start: 20130927, end: 20151015
  46. MOSAPRIDE CITRATE HYDRATE [Concomitant]
     Active Substance: MOSAPRIDE CITRATE DIHYDRATE
     Dosage: UNK
     Dates: start: 20140930, end: 20140930
  47. ROCAIN [Concomitant]
     Indication: INVESTIGATION
     Dosage: UNK
     Dates: start: 20141122, end: 20141122
  48. LACTEC                             /00490001/ [Concomitant]
     Indication: SURGERY
     Dosage: UNK
     Dates: start: 20140930, end: 20140930
  49. NIFLEC [Concomitant]
     Active Substance: BICARBONATE ION\POLYETHYLENE GLYCOLS\POTASSIUM CATION\SODIUM CHLORIDE\SODIUM SULFATE ANHYDROUS
     Dosage: UNK
     Dates: start: 20140930, end: 20140930
  50. PATANOL [Concomitant]
     Active Substance: OLOPATADINE HYDROCHLORIDE
     Dosage: UNK
     Dates: start: 20151008
  51. LACTEC [Concomitant]
     Active Substance: CALCIUM CHLORIDE ANHYDROUS\POTASSIUM CHLORIDE\SODIUM CHLORIDE\SODIUM LACTATE
     Indication: SURGERY
     Dosage: UNK
     Dates: start: 20140930, end: 20140930
  52. ROCAIN [Concomitant]
     Dosage: UNK
     Dates: start: 20150603, end: 20150603
  53. ROCAIN [Concomitant]
     Dosage: UNK
     Dates: start: 20151014, end: 20151014
  54. ENSURE [Concomitant]
     Active Substance: AMINO ACIDS\DEXTROSE\ELECTROLYTES NOS\SOYBEAN OIL\VITAMINS
     Dosage: UNK
     Dates: start: 20150728, end: 20151012
  55. LASIX [Suspect]
     Active Substance: FUROSEMIDE
     Dosage: UNK
     Route: 042
     Dates: start: 20130914, end: 20131010
  56. LOXOPROFEN [Suspect]
     Active Substance: LOXOPROFEN
     Indication: PRODUCT USED FOR UNKNOWN INDICATION
     Dosage: UNK
     Route: 065
     Dates: start: 20150915, end: 20150924
  57. MUCODYNE [Concomitant]
     Active Substance: CARBOCYSTEINE
     Indication: BRONCHITIS
     Dosage: UNK
     Dates: end: 20131101
  58. TAKEPRON [Concomitant]
     Active Substance: LANSOPRAZOLE
     Indication: PROPHYLAXIS
     Dosage: UNK
     Dates: end: 20131101
  59. FLIVAS [Concomitant]
     Active Substance: NAFTOPIDIL
     Dosage: UNK
     Dates: start: 20150416, end: 20151014
  60. BAKTAR [Concomitant]
     Active Substance: SULFAMETHOXAZOLE\TRIMETHOPRIM
     Dosage: UNK
     Dates: start: 20130927, end: 20150118
  61. REBAMIPIDE [Concomitant]
     Active Substance: REBAMIPIDE
     Indication: PROPHYLAXIS
     Dosage: UNK
     Dates: start: 20150915, end: 20150924
  62. SOL-MELCORT [Concomitant]
     Active Substance: METHYLPREDNISOLONE SODIUM SUCCINATE
     Dosage: UNK
     Dates: start: 20151015, end: 20151015
  63. LIVOSTIN EYE DROPS [Concomitant]
     Indication: CONJUNCTIVITIS ALLERGIC
     Dosage: UNK
     Dates: start: 20140929
  64. PANTOL (JAPAN) [Concomitant]
     Indication: PROPHYLAXIS
     Dosage: UNK
     Dates: start: 20150915, end: 20151015

REACTIONS (52)
  - Concomitant disease progression [Fatal]
  - Stomatitis [Recovered/Resolved]
  - Dyspnoea [Recovered/Resolved]
  - Rash [Recovering/Resolving]
  - Blood cholesterol increased [Recovered/Resolved]
  - Hypertension [Recovered/Resolved]
  - Dysuria [Recovered/Resolved]
  - Anaemia [Recovered/Resolved]
  - Lung infection [Recovered/Resolved]
  - Hypoalbuminaemia [Recovering/Resolving]
  - Blood urea increased [Recovered/Resolved]
  - Decreased appetite [Not Recovered/Not Resolved]
  - Anaemia [Recovered/Resolved]
  - Hypocalcaemia [Recovered/Resolved]
  - Back pain [Recovered/Resolved]
  - Hypertriglyceridaemia [Recovered/Resolved]
  - Glycosuria [Recovered/Resolved]
  - Rhinitis allergic [Recovering/Resolving]
  - Proteinuria [Recovered/Resolved]
  - Abdominal pain upper [Unknown]
  - Alanine aminotransferase increased [Recovered/Resolved]
  - Blood lactate dehydrogenase increased [Recovered/Resolved]
  - Oral infection [Recovered/Resolved]
  - Oral pain [Recovering/Resolving]
  - Dermatophytosis of nail [Recovering/Resolving]
  - Brain natriuretic peptide increased [Recovered/Resolved]
  - Dizziness [Recovered/Resolved]
  - Nasal congestion [Recovered/Resolved]
  - Pneumothorax [Recovered/Resolved]
  - Pneumothorax [Recovered/Resolved]
  - Hypokalaemia [Recovered/Resolved]
  - Blood alkaline phosphatase increased [Recovered/Resolved]
  - Gamma-glutamyltransferase increased [Recovered/Resolved]
  - Proteinuria [Recovered/Resolved]
  - Pleural effusion [Recovered/Resolved]
  - Flushing [Recovered/Resolved]
  - Pneumothorax [Recovering/Resolving]
  - Hyperglycaemia [Recovered/Resolved]
  - Pyrexia [Recovered/Resolved]
  - Brain natriuretic peptide increased [Recovered/Resolved]
  - Upper respiratory tract inflammation [Recovered/Resolved]
  - Haemorrhoids [Unknown]
  - Constipation [Recovered/Resolved]
  - Pneumothorax [Recovered/Resolved]
  - Syncope [Not Recovered/Not Resolved]
  - Blood urea increased [Recovered/Resolved]
  - Aspartate aminotransferase increased [Recovered/Resolved]
  - Non-cardiac chest pain [Recovered/Resolved]
  - Large intestine polyp [Recovered/Resolved]
  - Anaemia [Recovered/Resolved]
  - Anaemia [Not Recovered/Not Resolved]
  - Arthralgia [Unknown]

NARRATIVE: CASE EVENT DATE: 20130824
